FAERS Safety Report 13681022 (Version 1)
Quarter: 2017Q2

REPORT INFORMATION
  Report Type: Spontaneous
  Country: GB (occurrence: GB)
  Receive Date: 20170623
  Receipt Date: 20170623
  Transmission Date: 20170830
  Serious: Yes (Other)
  Sender: FDA-Public Use
  Company Number: GB-ROCHE-1954514

PATIENT
  Age: 48 Year
  Sex: Male
  Weight: 106 kg

DRUGS (8)
  1. METOCLOPRAMIDE. [Concomitant]
     Active Substance: METOCLOPRAMIDE
     Route: 065
  2. NAPROXEN. [Concomitant]
     Active Substance: NAPROXEN
     Route: 065
  3. SILDENAFIL. [Concomitant]
     Active Substance: SILDENAFIL
     Route: 065
  4. METHOTREXATE. [Concomitant]
     Active Substance: METHOTREXATE
  5. TOCILIZUMAB [Suspect]
     Active Substance: TOCILIZUMAB
     Indication: RHEUMATOID ARTHRITIS
     Route: 058
     Dates: start: 20170208, end: 20170501
  6. OMEPRAZOLE. [Concomitant]
     Active Substance: OMEPRAZOLE
     Route: 065
  7. FOLIC ACID. [Concomitant]
     Active Substance: FOLIC ACID
     Route: 065
  8. TRAMADOL HYDROCHLORIDE. [Concomitant]
     Active Substance: TRAMADOL HYDROCHLORIDE
     Route: 065

REACTIONS (4)
  - Ischaemia [Recovering/Resolving]
  - Cyanosis [Recovering/Resolving]
  - Complement factor C4 decreased [Unknown]
  - Cutaneous vasculitis [Recovering/Resolving]

NARRATIVE: CASE EVENT DATE: 20170215
